FAERS Safety Report 4909961-5 (Version None)
Quarter: 2006Q1

REPORT INFORMATION
  Report Type: 
  Country: None (occurrence: None)
  Receive Date: 20060213
  Receipt Date: 20060201
  Transmission Date: 20060701
  Serious: Yes (Other)
  Sender: FDA-Public Use
  Company Number: SE-SANOFI-SYNTHELABO-A01200600884

PATIENT
  Age: 58 Year
  Sex: Female

DRUGS (10)
  1. STILNOCT [Suspect]
     Indication: DEPRESSION
     Dosage: 10 MG
     Route: 048
     Dates: start: 19920101
  2. ZOLOFT [Interacting]
     Indication: DEPRESSION
     Dosage: 50 MG
     Route: 048
     Dates: start: 20040901, end: 20041015
  3. BRICANYL [Concomitant]
     Dosage: UNK
     Route: 065
  4. LASIX [Concomitant]
     Dosage: UNK
     Route: 065
  5. MINIFOM [Concomitant]
     Dosage: UNK
     Route: 065
  6. MOLLIPECT [Concomitant]
     Dosage: UNK
     Route: 065
  7. XANOR [Concomitant]
     Dosage: UNK
     Route: 065
  8. BETOLVEX [Concomitant]
     Dosage: UNK
     Route: 065
  9. SPIRONOLAKTON NYCOMED [Concomitant]
     Dosage: UNK
     Route: 065
  10. LOPERAMID [Concomitant]

REACTIONS (5)
  - DRUG INTERACTION [None]
  - HALLUCINATION [None]
  - HYPERACUSIS [None]
  - MANIA [None]
  - PHOTOPHOBIA [None]
